FAERS Safety Report 8980237 (Version 1)
Quarter: 2012Q4

REPORT INFORMATION
  Report Type: 
  Country: US (occurrence: US)
  Receive Date: 20121221
  Receipt Date: 20121221
  Transmission Date: 20130627
  Serious: Yes (Death)
  Sender: FDA-Public Use
  Company Number: US-GLAXOSMITHKLINE-A1005896A

PATIENT
  Sex: Male

DRUGS (5)
  1. ARZERRA [Suspect]
     Indication: CHRONIC LYMPHOCYTIC LEUKAEMIA
     Dosage: 300MG See dosage text
     Route: 042
     Dates: start: 20120920
  2. UNKNOWN [Suspect]
     Indication: PRODUCT USED FOR UNKNOWN INDICATION
     Route: 042
  3. TYLENOL [Concomitant]
  4. BENADRYL [Concomitant]
  5. STEROID [Concomitant]

REACTIONS (1)
  - Death [Fatal]
